FAERS Safety Report 6732761-0 (Version None)
Quarter: 2010Q2

REPORT INFORMATION
  Report Type: 
  Country: None (occurrence: None)
  Receive Date: 20100519
  Receipt Date: 20100511
  Transmission Date: 20101027
  Serious: No
  Sender: FDA-Public Use
  Company Number: US-B.I. PHARMACEUTICALS,INC./RIDGEFIELD-2010-BP-05001BP

PATIENT
  Age: 79 Year
  Sex: Male

DRUGS (6)
  1. MIRAPEX [Suspect]
     Route: 048
  2. COUMADIN [Concomitant]
  3. SIMVASTATIN [Concomitant]
  4. LISINOPRIL [Concomitant]
  5. COREG [Concomitant]
  6. FLOMAX [Concomitant]

REACTIONS (2)
  - DRUG EFFECT DECREASED [None]
  - GAIT DISTURBANCE [None]
